FAERS Safety Report 6895447-8 (Version None)
Quarter: 2010Q3

REPORT INFORMATION
  Report Type: 
  Country: None (occurrence: None)
  Receive Date: 20100802
  Receipt Date: 20100728
  Transmission Date: 20110219
  Serious: Yes (Other)
  Sender: FDA-Public Use
  Company Number: BR-ROCHE-710114

PATIENT
  Sex: Female
  Weight: 46.5 kg

DRUGS (7)
  1. METHOXY POLYETHYLENE GLYCOL-EPOETIN BETA [Suspect]
     Dosage: DATE OF LAST DOSE PRIOR TO SAE: 05 MARCH 2010, TEMPORARILY INTERRUPTED, DOSAGE FORM: PFS
     Route: 042
     Dates: start: 20091007, end: 20100611
  2. ACETYLSALICYLIC ACID SRT [Concomitant]
     Dates: start: 20040101
  3. AMIODARONE HCL [Concomitant]
     Dates: start: 20081203
  4. AMLODIPINE [Concomitant]
     Dates: start: 20040101
  5. OMEPRAZOLE [Concomitant]
     Dates: start: 20040101
  6. VITAMIN B COMPLEX CAP [Concomitant]
     Dates: start: 20040101
  7. FOLIC ACID [Concomitant]
     Dates: start: 20040101

REACTIONS (1)
  - LUNG NEOPLASM [None]
